FAERS Safety Report 6774744-0 (Version None)
Quarter: 2010Q2

REPORT INFORMATION
  Report Type: 
  Country: None (occurrence: None)
  Receive Date: 20100617
  Receipt Date: 20100609
  Transmission Date: 20101027
  Serious: Yes (Disabling)
  Sender: FDA-Public Use
  Company Number: BR-ROCHE-704197

PATIENT
  Age: 73 Year
  Sex: Female
  Weight: 58 kg

DRUGS (7)
  1. AVASTIN [Suspect]
     Indication: MACULAR DEGENERATION
     Dosage: ROUTE: OCULAR; FREQUENCY REPORTED AS ONE SINGLE DOSE
     Route: 031
     Dates: start: 20070101, end: 20070101
  2. LIMBITROL [Concomitant]
     Indication: HYPERTENSION
  3. ENALAPRIL MALEATE [Concomitant]
     Indication: HYPERTENSION
  4. ALPROX [Concomitant]
     Indication: HYPERTENSION
     Dosage: DRUG REPORTED AS ALTROX
  5. OSCAL [Concomitant]
     Dosage: INDICATION: ^FOR BONE^
  6. VITAMIN TAB [Concomitant]
  7. ALENDRONATE SODIUM [Concomitant]
     Dosage: INDICATION: FOR BONE, DRUG REPORTED AS ALENDIL (ALENDRONATE SODIUM)

REACTIONS (2)
  - BLINDNESS [None]
  - EYE DISORDER [None]
